FAERS Safety Report 20346604 (Version 4)
Quarter: 2022Q1

REPORT INFORMATION
  Report Type: Report from Study
  Country: US (occurrence: US)
  Receive Date: 20220118
  Receipt Date: 20220228
  Transmission Date: 20220423
  Serious: No
  Sender: FDA-Public Use
  Company Number: US-NOVARTISTESTPH-NVSC2022US007897

PATIENT
  Sex: Female
  Weight: 73.197 kg

DRUGS (1)
  1. MAYZENT [Suspect]
     Active Substance: SIPONIMOD
     Indication: Secondary progressive multiple sclerosis
     Dosage: 2 MG, QD
     Route: 048
     Dates: start: 20211102

REACTIONS (4)
  - Pain in extremity [Unknown]
  - Bone pain [Unknown]
  - Hepatic enzyme increased [Unknown]
  - Hypertension [Unknown]
